FAERS Safety Report 6080988-6 (Version None)
Quarter: 2009Q1

REPORT INFORMATION
  Report Type: 
  Country: None (occurrence: None)
  Receive Date: 20090217
  Receipt Date: 20090109
  Transmission Date: 20090719
  Serious: Yes (Death, Other)
  Sender: FDA-Public Use
  Company Number: IN-B.I. PHARMACEUTICALS,INC./RIDGEFIELD-2008-DE-01219GD

PATIENT

DRUGS (9)
  1. NEVIRAPINE [Suspect]
     Indication: HUMAN IMMUNODEFICIENCY VIRUS TRANSMISSION
     Route: 064
  2. NEVIRAPINE [Suspect]
     Indication: PROPHYLAXIS
     Dosage: 2 MG/KG
     Route: 048
  3. NEVIRAPINE [Suspect]
     Dosage: 5MG
     Route: 048
  4. NEVIRAPINE [Suspect]
     Indication: HUMAN IMMUNODEFICIENCY VIRUS TRANSMISSION
     Route: 064
  5. NEVIRAPINE [Suspect]
     Indication: PROPHYLAXIS
     Dosage: 2 MG/KG
     Route: 048
  6. NEVIRAPINE [Suspect]
     Dosage: 5MG
     Route: 048
  7. ZIDOVUDINE [Suspect]
     Indication: HUMAN IMMUNODEFICIENCY VIRUS TRANSMISSION
     Route: 064
  8. ZIDOVUDINE [Suspect]
     Indication: PROPHYLAXIS
  9. MULTI-VITAMINS [Concomitant]
     Dosage: 1ML

REACTIONS (13)
  - CONGENITAL ANOMALY [None]
  - DEATH [None]
  - DRUG RESISTANCE [None]
  - GASTROINTESTINAL DISORDER [None]
  - GROWTH RETARDATION [None]
  - HIV INFECTION [None]
  - INFECTION [None]
  - MALNUTRITION [None]
  - NEONATAL DISORDER [None]
  - NEUTROPENIA [None]
  - RASH [None]
  - RESPIRATORY DISORDER [None]
  - VIRAL MUTATION IDENTIFIED [None]
